FAERS Safety Report 4502210-1 (Version None)
Quarter: 2004Q4

REPORT INFORMATION
  Report Type: 
  Country: None (occurrence: None)
  Receive Date: 20041109
  Receipt Date: 20041025
  Transmission Date: 20050328
  Serious: Yes (Life-Threatening)
  Sender: FDA-Public Use
  Company Number: GBS041015817

PATIENT
  Age: 13 Year
  Sex: Male
  Weight: 58 kg

DRUGS (1)
  1. STRATTERA [Suspect]
     Indication: ATTENTION DEFICIT/HYPERACTIVITY DISORDER
     Dosage: 78 MG
     Dates: start: 20040801, end: 20041012

REACTIONS (4)
  - DIZZINESS [None]
  - FALL [None]
  - RESPIRATORY RATE DECREASED [None]
  - SYNCOPE [None]
